FAERS Safety Report 9855048 (Version 1)
Quarter: 2014Q1

REPORT INFORMATION
  Report Type: Spontaneous
  Country: US (occurrence: None)
  Receive Date: 20140127
  Receipt Date: 20140127
  Transmission Date: 20141002
  Serious: Yes (Other)
  Sender: FDA-Public Use
  Company Number: VAL_02947_2014

PATIENT
  Sex: Female

DRUGS (1)
  1. METHYLERGOMETRINE MALEATE (BASOFORTINA - METHYLERGOMETRINE MALEATE) [Suspect]
     Indication: HAEMORRHAGE
     Dosage: DF, Q6H ORAL
     Dates: start: 2012, end: 2012

REACTIONS (3)
  - Haemorrhage [None]
  - Disease recurrence [None]
  - Drug dose omission [None]
